FAERS Safety Report 6357007-7 (Version None)
Quarter: 2009Q3

REPORT INFORMATION
  Report Type: 
  Country: None (occurrence: None)
  Receive Date: 20090817
  Receipt Date: 20090521
  Transmission Date: 20100115
  Serious: No
  Sender: FDA-Public Use
  Company Number: 20085882

PATIENT
  Sex: Male

DRUGS (1)
  1. LIORESAL [Suspect]
     Indication: MUSCLE SPASTICITY
     Dosage: 90.05 MCG, DAILY, INTRAVENOUS
     Route: 042

REACTIONS (3)
  - NAUSEA [None]
  - RHINITIS [None]
  - VOMITING [None]
